FAERS Safety Report 25031177 (Version 1)
Quarter: 2025Q1

REPORT INFORMATION
  Report Type: Spontaneous
  Country: US (occurrence: None)
  Receive Date: 20250228
  Receipt Date: 20250228
  Transmission Date: 20250409
  Serious: Yes (Hospitalization)
  Sender: FDA-CTU
  Company Number: None

PATIENT
  Sex: Male

DRUGS (4)
  1. SPIRONOLACTONE [Suspect]
     Active Substance: SPIRONOLACTONE
     Indication: Essential hypertension
     Dosage: FREQUENCY : DAILY;?
     Route: 048
     Dates: start: 202310
  2. LASIX [Concomitant]
     Active Substance: FUROSEMIDE
  3. TADALAFIL [Concomitant]
     Active Substance: TADALAFIL
  4. TYVASO [Concomitant]
     Active Substance: TREPROSTINIL

REACTIONS (5)
  - Pneumonia [None]
  - Headache [None]
  - Chest discomfort [None]
  - Fatigue [None]
  - Weight decreased [None]
